FAERS Safety Report 7504107-1 (Version None)
Quarter: 2011Q2

REPORT INFORMATION
  Report Type: 
  Country: None (occurrence: None)
  Receive Date: 20110401
  Receipt Date: 20110307
  Transmission Date: 20111010
  Serious: No
  Sender: FDA-Public Use
  Company Number: US-004876

PATIENT
  Sex: Male
  Weight: 58.9676 kg

DRUGS (1)
  1. FIRMAGON [Suspect]
     Indication: PROSTATE CANCER
     Dosage: 240 MG 1X SUBCUTANEOUS
     Route: 058
     Dates: start: 20110208, end: 20110208

REACTIONS (3)
  - INJECTION SITE INDURATION [None]
  - INJECTION SITE ERYTHEMA [None]
  - THERAPEUTIC RESPONSE UNEXPECTED [None]
